FAERS Safety Report 18282518 (Version 4)
Quarter: 2020Q4

REPORT INFORMATION
  Report Type: Spontaneous
  Country: US (occurrence: US)
  Receive Date: 20200918
  Receipt Date: 20201111
  Transmission Date: 20210113
  Serious: Yes (Other)
  Sender: FDA-Public Use
  Company Number: US-PFIZER INC-2020353989

PATIENT
  Age: 62 Year
  Sex: Female
  Weight: 49.9 kg

DRUGS (4)
  1. PREMARIN [Suspect]
     Active Substance: ESTROGENS, CONJUGATED
     Indication: VULVOVAGINAL DISCOMFORT
     Dosage: 1 G, AS NEEDED (1 G, DAILY FOR TWO WEEKS; THEN 1 G, 1-3 TIMES WEEKLY AS NEEDED)
     Route: 067
     Dates: end: 20200906
  2. PREMARIN [Suspect]
     Active Substance: ESTROGENS, CONJUGATED
     Indication: VULVOVAGINAL DRYNESS
     Dosage: 1 G, DAILY (1 G, DAILY FOR TWO WEEKS; THEN 1 G, 1-3 TIMES WEEKLY AS NEEDED)
     Route: 067
     Dates: start: 20200904
  3. YUVAFEM [Suspect]
     Active Substance: ESTRADIOL HEMIHYDRATE
     Indication: VULVOVAGINAL DRYNESS
     Dosage: 10 UG, 2X/WEEK
     Route: 067
     Dates: start: 2017, end: 20200827
  4. YUVAFEM [Suspect]
     Active Substance: ESTRADIOL HEMIHYDRATE
     Indication: VULVOVAGINAL DISCOMFORT

REACTIONS (7)
  - Application site swelling [Recovered/Resolved]
  - Off label use [Unknown]
  - Contraindicated product administered [Unknown]
  - Application site pruritus [Recovered/Resolved]
  - Device delivery system issue [Unknown]
  - Application site erythema [Unknown]
  - Product use issue [Unknown]

NARRATIVE: CASE EVENT DATE: 202009
